FAERS Safety Report 19730370 (Version 1)
Quarter: 2021Q3

REPORT INFORMATION
  Report Type: Spontaneous
  Country: DE (occurrence: DE)
  Receive Date: 20210821
  Receipt Date: 20210821
  Transmission Date: 20211014
  Serious: Yes (Other)
  Sender: FDA-Public Use
  Company Number: DE-UCBSA-2021038864

PATIENT
  Age: 38 Year
  Sex: Female

DRUGS (1)
  1. CERTOLIZUMAB PEGOL [Suspect]
     Active Substance: CERTOLIZUMAB PEGOL
     Indication: AXIAL SPONDYLOARTHRITIS
     Dosage: UNKNOWN DOSE
     Dates: start: 201512

REACTIONS (6)
  - Carpal tunnel syndrome [Unknown]
  - Lactose intolerance [Recovering/Resolving]
  - Axial spondyloarthritis [Unknown]
  - Psoriasis [Unknown]
  - Inflammatory bowel disease [Recovering/Resolving]
  - Staphylococcal skin infection [Unknown]

NARRATIVE: CASE EVENT DATE: 201706
